FAERS Safety Report 4306870-X (Version None)
Quarter: 2004Q1

REPORT INFORMATION
  Report Type: 
  Country: None (occurrence: None)
  Receive Date: 20040227
  Receipt Date: 20030424
  Transmission Date: 20041129
  Serious: Yes (Hospitalization)
  Sender: FDA-Public Use
  Company Number: JP-GLAXOSMITHKLINE-B0298173A

PATIENT
  Age: 79 Year
  Sex: Female
  Weight: 44 kg

DRUGS (8)
  1. ZOVIRAX [Suspect]
     Indication: HERPES ZOSTER
     Dosage: 2G PER DAY
     Route: 048
     Dates: start: 20030421, end: 20030423
  2. VIDARABINE [Concomitant]
     Indication: HERPES ZOSTER
     Route: 061
     Dates: start: 20030421
  3. LOXOPROFEN SODIUM [Concomitant]
     Indication: HERPES ZOSTER
     Route: 048
     Dates: start: 20030421, end: 20030101
  4. LEVOTHYROXINE SODIUM [Concomitant]
     Indication: HYPOTHYROIDISM
     Dosage: 75MCG PER DAY
     Route: 048
     Dates: start: 20030421
  5. FUROSEMIDE [Concomitant]
     Indication: RENAL FAILURE CHRONIC
     Dosage: 120MG PER DAY
     Route: 048
     Dates: start: 20000609
  6. PRECIPITATED CALCIUM CARBONATE [Concomitant]
     Indication: RENAL FAILURE CHRONIC
     Dosage: 3UNIT PER DAY
     Route: 048
     Dates: start: 20000609
  7. ATORVASTATIN CALCIUM [Concomitant]
     Indication: HYPERLIPIDAEMIA
     Dosage: 10MG PER DAY
     Route: 048
     Dates: start: 20011003
  8. PERITONEAL DIALYSIS [Concomitant]
     Dates: start: 20000921

REACTIONS (7)
  - COMA [None]
  - CONVULSION [None]
  - DECREASED APPETITE [None]
  - DEPRESSED LEVEL OF CONSCIOUSNESS [None]
  - DYSKINESIA [None]
  - HAEMODIALYSIS [None]
  - SENILE DEMENTIA [None]
